FAERS Safety Report 8535621-8 (Version None)
Quarter: 2012Q3

REPORT INFORMATION
  Report Type: 
  Country: None (occurrence: None)
  Receive Date: 20120725
  Receipt Date: 20120718
  Transmission Date: 20120928
  Serious: Yes (Hospitalization)
  Sender: FDA-Public Use
  Company Number: US-BAYER-2011-093735

PATIENT
  Age: 39 Year
  Sex: Female

DRUGS (7)
  1. KLONOPIN [Concomitant]
     Dosage: 1 MG, BID
  2. ZOLOFT [Concomitant]
     Dosage: 50 MG, QD
  3. DIAZEPAM [Concomitant]
     Dosage: 5 MG, TID
  4. ANUSOL HC [Concomitant]
     Dosage: UNK UNK, BID
  5. DARVOCET-N 50 [Concomitant]
     Dosage: EVERY 4 HOURS AS NEEDED
  6. YAZ [Suspect]
     Dosage: UNK
     Dates: start: 20061101, end: 20080501
  7. NEXIUM [Concomitant]
     Dosage: 40 MG, QD
     Route: 048

REACTIONS (8)
  - CHOLECYSTITIS [None]
  - PAIN [None]
  - BILIARY DYSKINESIA [None]
  - ANXIETY [None]
  - MENTAL DISORDER [None]
  - GENERAL PHYSICAL HEALTH DETERIORATION [None]
  - ABDOMINAL PAIN [None]
  - EMOTIONAL DISTRESS [None]
